FAERS Safety Report 11917783 (Version 2)
Quarter: 2016Q1

REPORT INFORMATION
  Report Type: Spontaneous
  Country: US (occurrence: US)
  Receive Date: 20160114
  Receipt Date: 20160120
  Transmission Date: 20160526
  Serious: Yes (Hospitalization, Other)
  Sender: FDA-Public Use
  Company Number: US-PFIZER INC-2016014113

PATIENT
  Age: 28 Year
  Sex: Female
  Weight: 99 kg

DRUGS (1)
  1. CLINDAMYCIN HCL [Suspect]
     Active Substance: CLINDAMYCIN HYDROCHLORIDE
     Indication: SOFT TISSUE INFECTION
     Dosage: UNK
     Route: 048

REACTIONS (7)
  - Skin plaque [Unknown]
  - Condition aggravated [Not Recovered/Not Resolved]
  - Oral disorder [Unknown]
  - Staphylococcal infection [Unknown]
  - Drug ineffective [Unknown]
  - Skin lesion [Not Recovered/Not Resolved]
  - Ear disorder [Unknown]
